FAERS Safety Report 10928599 (Version 2)
Quarter: 2015Q2

REPORT INFORMATION
  Report Type: Spontaneous
  Country: US (occurrence: US)
  Receive Date: 20150319
  Receipt Date: 20150524
  Transmission Date: 20150821
  Serious: No
  Sender: FDA-Public Use
  Company Number: US-JNJFOC-20130617629

PATIENT
  Sex: Female
  Weight: 25.86 kg

DRUGS (2)
  1. CONCERTA [Suspect]
     Active Substance: METHYLPHENIDATE HYDROCHLORIDE
     Indication: TOURETTE^S DISORDER
     Route: 048
     Dates: start: 2012, end: 2012
  2. CONCERTA [Suspect]
     Active Substance: METHYLPHENIDATE HYDROCHLORIDE
     Indication: TOURETTE^S DISORDER
     Dosage: ONE 27 MG TABLET AND ONE 18 MG TABLET DAILY
     Route: 048
     Dates: start: 2012

REACTIONS (2)
  - Weight decreased [Not Recovered/Not Resolved]
  - Product use issue [Unknown]

NARRATIVE: CASE EVENT DATE: 2012
